FAERS Safety Report 7928498-2 (Version None)
Quarter: 2011Q4

REPORT INFORMATION
  Report Type: 
  Country: None (occurrence: None)
  Receive Date: 20111118
  Receipt Date: 20111111
  Transmission Date: 20120403
  Serious: Yes (Hospitalization, Congenital Anomaly)
  Sender: FDA-Public Use
  Company Number: PHHY2011DK099510

PATIENT
  Sex: Male

DRUGS (1)
  1. CITALOPRAM HYDROBROMIDE [Suspect]
     Dosage: 20 MG/DAY
     Route: 064
     Dates: start: 20080825, end: 20081215

REACTIONS (5)
  - HYPERMOBILITY SYNDROME [None]
  - PARAESTHESIA [None]
  - VISUAL IMPAIRMENT [None]
  - HEARING IMPAIRED [None]
  - FOETAL EXPOSURE DURING PREGNANCY [None]
